FAERS Safety Report 8011541-2 (Version None)
Quarter: 2011Q4

REPORT INFORMATION
  Report Type: 
  Country: None (occurrence: None)
  Receive Date: 20111228
  Receipt Date: 20111220
  Transmission Date: 20120403
  Serious: No
  Sender: FDA-Public Use
  Company Number: US-PFIZER INC-2011292678

PATIENT
  Sex: Female
  Weight: 44.444 kg

DRUGS (2)
  1. LEVOTHYROXINE [Concomitant]
     Dosage: UNK
  2. PREMARIN [Suspect]
     Indication: DYSPAREUNIA
     Dosage: UNK, 1X/DAY
     Route: 067
     Dates: start: 20111121, end: 20111206

REACTIONS (3)
  - VULVOVAGINAL SWELLING [None]
  - VULVOVAGINAL PRURITUS [None]
  - VULVOVAGINAL BURNING SENSATION [None]
